FAERS Safety Report 22365349 (Version 8)
Quarter: 2023Q2

REPORT INFORMATION
  Report Type: Report from Study
  Country: US (occurrence: US)
  Receive Date: 20230525
  Receipt Date: 20230623
  Transmission Date: 20230722
  Serious: No
  Sender: FDA-Public Use
  Company Number: US-002147023-NVSC2023US118469

PATIENT
  Age: 75 Year
  Sex: Male
  Weight: 60.3 kg

DRUGS (9)
  1. TREPROSTINIL [Suspect]
     Active Substance: TREPROSTINIL
     Indication: Pulmonary arterial hypertension
     Dosage: 30 (NG/KG/ MIN), CONT
     Route: 042
     Dates: start: 20210624
  2. TREPROSTINIL [Suspect]
     Active Substance: TREPROSTINIL
     Dosage: 30 (NG/KG/ MIN), CONT
     Route: 042
     Dates: start: 20210624
  3. TREPROSTINIL [Suspect]
     Active Substance: TREPROSTINIL
     Dosage: UNK UNK, CONT
     Route: 042
     Dates: start: 20230511
  4. TREPROSTINIL [Suspect]
     Active Substance: TREPROSTINIL
     Dosage: 30 (NG/KG/ MIN), CONT
     Route: 042
     Dates: start: 20230517
  5. TYVASO [Suspect]
     Active Substance: TREPROSTINIL
     Indication: Pulmonary arterial hypertension
     Dosage: UNK
     Dates: start: 20210624
  6. TYVASO [Suspect]
     Active Substance: TREPROSTINIL
     Dosage: 108 UG, QID (FORMULATION: GAS INHALATION)
     Dates: end: 20230513
  7. OPSUMIT [Concomitant]
     Active Substance: MACITENTAN
     Indication: Product used for unknown indication
     Dosage: UNK
     Route: 065
  8. SILDENAFIL CITRATE [Concomitant]
     Active Substance: SILDENAFIL CITRATE
     Indication: Product used for unknown indication
     Dosage: UNK
     Route: 065
  9. OFEV [Concomitant]
     Active Substance: NINTEDANIB
     Indication: Product used for unknown indication
     Dosage: UNK
     Route: 065

REACTIONS (12)
  - Pain [Unknown]
  - Nausea [Unknown]
  - Headache [Unknown]
  - Diarrhoea [Not Recovered/Not Resolved]
  - Peripheral swelling [Unknown]
  - Asthenia [Recovered/Resolved]
  - Exercise tolerance decreased [Recovered/Resolved]
  - Dyspnoea exertional [Unknown]
  - General physical health deterioration [Recovering/Resolving]
  - Catheter site infection [Unknown]
  - Skin disorder [Unknown]
  - Off label use [Unknown]

NARRATIVE: CASE EVENT DATE: 20230501
